FAERS Safety Report 17251418 (Version 1)
Quarter: 2019Q4

REPORT INFORMATION
  Report Type: Spontaneous
  Country: US (occurrence: US)
  Receive Date: 20191216
  Receipt Date: 20191216
  Transmission Date: 20200122
  Serious: No
  Sender: FDA-Public Use
  Company Number: None

PATIENT
  Age: 12 Year
  Sex: Male

DRUGS (3)
  1. PULMOZYME [Suspect]
     Active Substance: DORNASE ALFA
     Dosage: ?          OTHER DOSE:10/150/150MG;?
     Route: 048
     Dates: start: 20191017
  2. SYMDEKO [Suspect]
     Active Substance: IVACAFTOR\TEZACAFTOR
  3. PULMOZYME [Suspect]
     Active Substance: DORNASE ALFA
     Dosage: ?          OTHER DOSE:PULMOZYME 1MG/1ML;?
     Route: 055
     Dates: start: 20191118

REACTIONS (1)
  - Chest pain [None]
